FAERS Safety Report 10765918 (Version 1)
Quarter: 2015Q1

REPORT INFORMATION
  Report Type: Spontaneous
  Country: US (occurrence: None)
  Receive Date: 20150204
  Receipt Date: 20150204
  Transmission Date: 20150721
  Serious: Yes (Hospitalization)
  Sender: FDA-Public Use
  Company Number: None

PATIENT
  Age: 89 Year
  Sex: Female
  Weight: 62.2 kg

DRUGS (16)
  1. VIT B [Concomitant]
     Active Substance: VITAMINS
  2. APAP [Concomitant]
     Active Substance: ACETAMINOPHEN
  3. NORCO [Concomitant]
     Active Substance: ACETAMINOPHEN\HYDROCODONE BITARTRATE
  4. MVI/MINERALS [Concomitant]
  5. CA + VIT D [Concomitant]
  6. ASA [Suspect]
     Active Substance: ASPIRIN
     Indication: PROPHYLAXIS
     Dosage: CHRONIC
     Route: 048
  7. VITAMIN D [Concomitant]
     Active Substance: CHOLECALCIFEROL
  8. TRAMADOL [Concomitant]
     Active Substance: TRAMADOL
  9. PERICOLACE [Concomitant]
  10. BISACODYL. [Concomitant]
     Active Substance: BISACODYL
  11. LEXAPRO [Concomitant]
     Active Substance: ESCITALOPRAM OXALATE
  12. SYNTHROID [Concomitant]
     Active Substance: LEVOTHYROXINE SODIUM
  13. MIRALAX [Concomitant]
     Active Substance: POLYETHYLENE GLYCOL 3350
  14. MAGOX [Concomitant]
  15. VITAMIN C [Concomitant]
     Active Substance: ASCORBIC ACID
  16. ZOFRAN [Concomitant]
     Active Substance: ONDANSETRON HYDROCHLORIDE

REACTIONS (5)
  - Gastrooesophageal reflux disease [None]
  - Gastritis erosive [None]
  - Duodenal ulcer [None]
  - Gastritis [None]
  - Upper gastrointestinal haemorrhage [None]

NARRATIVE: CASE EVENT DATE: 20140502
